FAERS Safety Report 15976075 (Version 3)
Quarter: 2019Q1

REPORT INFORMATION
  Report Type: Spontaneous
  Country: US (occurrence: US)
  Receive Date: 20190218
  Receipt Date: 20190227
  Transmission Date: 20190418
  Serious: No
  Sender: FDA-Public Use
  Company Number: US-PFIZER INC-2017505518

PATIENT
  Age: 64 Year
  Sex: Male
  Weight: 117 kg

DRUGS (18)
  1. SOMAVERT [Suspect]
     Active Substance: PEGVISOMANT
     Dosage: 20 MG, DAILY
     Route: 058
     Dates: start: 20101005
  2. PLAVIX [Concomitant]
     Active Substance: CLOPIDOGREL BISULFATE
     Indication: ANTICOAGULANT THERAPY
     Dosage: 75 MG, 1X/DAY
     Route: 048
  3. NIACIN. [Concomitant]
     Active Substance: NIACIN
     Dosage: 250 MG, 1X/DAY
     Route: 048
  4. AMBIEN [Concomitant]
     Active Substance: ZOLPIDEM TARTRATE
     Indication: SLEEP DISORDER
     Dosage: UNK, DAILY (10MG TABLET, CUTS IN HALF SOMETIMES/TAKES BY MOUTH NIGHTLY AT BEDTIME)
     Route: 048
  5. HYDROCHLORZIDE [Concomitant]
     Active Substance: HYDROCHLOROTHIAZIDE
     Dosage: 25 MG, UNK
  6. SOMAVERT [Suspect]
     Active Substance: PEGVISOMANT
     Dosage: UNK, 2X/WEEK
  7. SOMAVERT [Suspect]
     Active Substance: PEGVISOMANT
     Dosage: 30 MG, DAILY
     Dates: start: 20101211
  8. LOSARTAN POTASSIUM. [Concomitant]
     Active Substance: LOSARTAN POTASSIUM
     Indication: HEART RATE ABNORMAL
     Dosage: 100 MG, 1X/DAY
     Route: 048
     Dates: start: 2017
  9. LOSARTAN POTASSIUM. [Concomitant]
     Active Substance: LOSARTAN POTASSIUM
     Indication: BLOOD PRESSURE ABNORMAL
  10. CELEXA [Concomitant]
     Active Substance: CITALOPRAM HYDROBROMIDE
     Indication: DEPRESSION
     Dosage: 20 MG, 1X/DAY
     Route: 048
  11. TYLENOL WITH CODEIN #4 [Concomitant]
     Indication: PAIN
     Dosage: TAKE UP TO 3 TIMES A DAY BY MOUTH AS NEEDED
     Route: 048
  12. SOMAVERT [Suspect]
     Active Substance: PEGVISOMANT
     Indication: ACROMEGALY
     Dosage: 20MG INJECTION ONCE A DAY
     Route: 058
     Dates: start: 20100101
  13. SOMAVERT [Suspect]
     Active Substance: PEGVISOMANT
     Indication: PITUITARY TUMOUR
     Dosage: UNK (THREE TIMES A WEEK)
  14. METOPROLOL SUCCINATE. [Concomitant]
     Active Substance: METOPROLOL SUCCINATE
     Indication: HYPERTENSION
     Dosage: 50 MG, 1X/DAY (AONE HALF TABLET ONCE  DAY)
     Route: 048
  15. HYDROCHLOROTHIAZIDE. [Concomitant]
     Active Substance: HYDROCHLOROTHIAZIDE
     Indication: CARDIAC DISORDER
     Dosage: 25 MG, 1X/DAY
     Route: 048
     Dates: start: 2017
  16. FLOMAX [Concomitant]
     Active Substance: TAMSULOSIN HYDROCHLORIDE
     Indication: URINARY TRACT DISORDER
     Dosage: 0.4 MG, 1X/DAY
     Route: 048
  17. BROMOCRIPTINE [Concomitant]
     Active Substance: BROMOCRIPTINE
     Indication: HORMONE LEVEL ABNORMAL
     Dosage: 2.5 MG, 1X/DAY
     Route: 048
  18. TAMSULOSIN HYDROCHLORIDE. [Concomitant]
     Active Substance: TAMSULOSIN HYDROCHLORIDE
     Dosage: 0.4 MG, UNK

REACTIONS (9)
  - High density lipoprotein decreased [Unknown]
  - Intentional dose omission [Unknown]
  - LDL/HDL ratio increased [Unknown]
  - Blood glucose increased [Unknown]
  - Low density lipoprotein increased [Unknown]
  - Insulin-like growth factor increased [Unknown]
  - Blood cholesterol increased [Unknown]
  - Blood triglycerides increased [Unknown]
  - Very low density lipoprotein increased [Unknown]

NARRATIVE: CASE EVENT DATE: 20170602
